FAERS Safety Report 18488673 (Version 1)
Quarter: 2020Q4

REPORT INFORMATION
  Report Type: Spontaneous
  Country: US (occurrence: US)
  Receive Date: 20201110
  Receipt Date: 20201110
  Transmission Date: 20210114
  Serious: No
  Sender: FDA-Public Use
  Company Number: US-PURDUE PHARMA-USA-2020-0151696

PATIENT
  Sex: Male
  Weight: 93 kg

DRUGS (1)
  1. MORPHINE SULFATE EXTENDED-RELEASE TABLETS (RHODES 74-769) [Suspect]
     Active Substance: MORPHINE SULFATE
     Indication: PROSTATE CANCER
     Dosage: 15 MG, Q8H
     Route: 048

REACTIONS (3)
  - Product colour issue [Unknown]
  - Product administration error [Unknown]
  - Cough [Recovered/Resolved]
